FAERS Safety Report 8256366-8 (Version None)
Quarter: 2012Q2

REPORT INFORMATION
  Report Type: 
  Country: None (occurrence: None)
  Receive Date: 20120402
  Receipt Date: 20120402
  Transmission Date: 20120825
  Serious: No
  Sender: FDA-Public Use
  Company Number: None

PATIENT
  Sex: Male
  Weight: 14.9 kg

DRUGS (2)
  1. PEG-L-ASPARAGINASE (PEGASPARGASE, ONCOSPAR) [Suspect]
     Dosage: 1525 IU
  2. DEXAMETHASONE [Suspect]
     Dosage: 75.6 MG

REACTIONS (8)
  - RESPIRATORY ARREST [None]
  - PANCREATITIS NECROTISING [None]
  - PAIN IN EXTREMITY [None]
  - CRYING [None]
  - SLEEP DISORDER DUE TO GENERAL MEDICAL CONDITION, INSOMNIA TYPE [None]
  - UNRESPONSIVE TO STIMULI [None]
  - RESPIRATORY DISORDER [None]
  - VOMITING [None]
